FAERS Safety Report 6168975-0 (Version None)
Quarter: 2009Q2

REPORT INFORMATION
  Report Type: 
  Country: None (occurrence: None)
  Receive Date: 20090427
  Receipt Date: 20090423
  Transmission Date: 20091009
  Serious: Yes (Life-Threatening, Hospitalization)
  Sender: FDA-Public Use
  Company Number: FR-BRISTOL-MYERS SQUIBB COMPANY-14600118

PATIENT
  Age: 78 Year
  Sex: Male
  Weight: 81 kg

DRUGS (3)
  1. CETUXIMAB [Suspect]
     Indication: COLON CANCER
     Dosage: CUMULATIVE DOSE OF 3220 MG;INITIATED ON 26FEB07
     Route: 042
     Dates: start: 20070402, end: 20070402
  2. IRINOTECAN HCL [Suspect]
     Indication: COLON CANCER
     Dosage: CUMULATIVE DOSE 1120 MG; INITIATED ON 26FEB07
     Route: 042
     Dates: start: 20070326, end: 20070326
  3. FLUOROURACIL [Suspect]
     Indication: COLON CANCER
     Dosage: 26FEB-26MAR07;IV DRIP;3500MG(10300MG) 26FEB-26MAR07;IV BOLUS;750MG(2250MG)
     Route: 042
     Dates: start: 20070326, end: 20070326

REACTIONS (1)
  - HYPOVOLAEMIC SHOCK [None]
